FAERS Safety Report 11247869 (Version 1)
Quarter: 2015Q2

REPORT INFORMATION
  Report Type: Spontaneous
  Country: US (occurrence: None)
  Receive Date: 20150617
  Receipt Date: 20150617
  Transmission Date: 20150821
  Serious: No
  Sender: FDA-Public Use
  Company Number: 2014TASUS000484

PATIENT
  Age: 60 Year
  Sex: Female
  Weight: 77.1 kg

DRUGS (22)
  1. BIOTIN [Concomitant]
     Active Substance: BIOTIN
  2. HETLIOZ [Suspect]
     Active Substance: TASIMELTEON
  3. PATADAY (OLOPATADINE HYDROCHLORIDE) [Concomitant]
  4. CORDRAN (FLUDROXYCORTIDE) LOTION (EXCEPT LOTION FOR EYE) [Concomitant]
  5. DEXILANT [Concomitant]
     Active Substance: DEXLANSOPRAZOLE
  6. SAVELLA [Concomitant]
     Active Substance: MILNACIPRAN HYDROCHLORIDE
  7. THYROID [Concomitant]
     Active Substance: LEVOTHYROXINE\LIOTHYRONINE
  8. VOLTAREN (DICLOFENAC EPOLAMINE) [Concomitant]
  9. HYDROCORTISONE (HYDROCORTISONE HYDROGEN SUCCINATE) [Concomitant]
  10. LITHIUM (LITHIUM ASPARTATE) [Concomitant]
  11. SUCRALFATE. [Concomitant]
     Active Substance: SUCRALFATE
  12. DICLOFENAC POTASSIUM. [Concomitant]
     Active Substance: DICLOFENAC POTASSIUM
  13. PROMETHAZINE [Concomitant]
     Active Substance: PROMETHAZINE\PROMETHAZINE HYDROCHLORIDE
  14. LOSARTAN/HYDROCHLOROTHIAZIDE (HYDROCHLOROTHIAZIDE, LOSARTAN POTASSIUM) [Concomitant]
  15. SAMA (CAMPHOR, MENTHOL, PHENOL) LOTION (EXCEPT LOTION FOR EYE) [Concomitant]
  16. KADIAN (MORPHINE SULFATE) [Concomitant]
  17. DHEA/PREGENOLONE [Concomitant]
  18. NORTRIPTYLINE (NORTRIPTYLINE HYDROCHLORIDE) [Concomitant]
  19. ESCITALOPRAM [Concomitant]
     Active Substance: ESCITALOPRAM OXALATE
  20. POTASSIUM CL (POTASSIUM CHLORIDE) [Concomitant]
  21. CLOTRIMAZOLE. [Concomitant]
     Active Substance: CLOTRIMAZOLE
  22. TOBRADEX (DEXAMETHASONE, TOBRAMYCIN) [Concomitant]

REACTIONS (4)
  - Discomfort [None]
  - Colour blindness acquired [None]
  - Headache [None]
  - Nausea [None]

NARRATIVE: CASE EVENT DATE: 20140822
